FAERS Safety Report 6779802-2 (Version None)
Quarter: 2010Q2

REPORT INFORMATION
  Report Type: 
  Country: None (occurrence: None)
  Receive Date: 20100618
  Receipt Date: 20100609
  Transmission Date: 20101027
  Serious: Yes (Hospitalization, Other)
  Sender: FDA-Public Use
  Company Number: US-PFIZER INC-2010065426

PATIENT
  Sex: Female

DRUGS (10)
  1. CELEBREX [Suspect]
     Indication: RHEUMATOID ARTHRITIS
     Dosage: UNK
     Route: 048
  2. MEDROL [Suspect]
     Indication: RHEUMATOID ARTHRITIS
  3. ETANERCEPT [Suspect]
     Indication: RHEUMATOID ARTHRITIS
     Dosage: UNK
  4. METHOTREXATE SODIUM [Suspect]
     Indication: RHEUMATOID ARTHRITIS
     Dosage: UNK
  5. ARAVA [Suspect]
     Indication: RHEUMATOID ARTHRITIS
     Dosage: UNK
     Route: 048
  6. PLAQUENIL [Suspect]
     Indication: RHEUMATOID ARTHRITIS
     Dosage: UNK
     Route: 048
  7. HUMIRA [Suspect]
     Indication: RHEUMATOID ARTHRITIS
     Dosage: UNK
  8. PREDNISONE [Suspect]
     Indication: RHEUMATOID ARTHRITIS
     Dosage: UNK
  9. IMURAN [Suspect]
     Indication: RHEUMATOID ARTHRITIS
     Dosage: 50 MG, 1X/DAY
     Dates: start: 20100205, end: 20100305
  10. IMURAN [Suspect]
     Dosage: 100 MG, 1X/DAY
     Dates: start: 20100305

REACTIONS (11)
  - CARDIAC DISORDER [None]
  - DEHYDRATION [None]
  - DIARRHOEA [None]
  - DYSPNOEA [None]
  - HAEMOGLOBIN DECREASED [None]
  - HYPOTENSION [None]
  - INFLAMMATION [None]
  - PAIN [None]
  - PSORIASIS [None]
  - RHEUMATOID ARTHRITIS [None]
  - SYNCOPE [None]
